FAERS Safety Report 11793779 (Version 1)
Quarter: 2015Q4

REPORT INFORMATION
  Report Type: Spontaneous
  Country: BR (occurrence: US)
  Receive Date: 20151202
  Receipt Date: 20151202
  Transmission Date: 20160305
  Serious: Yes (Other)
  Sender: FDA-Public Use
  Company Number: BR-GLAXOSMITHKLINE-US2015GSK170854

PATIENT
  Age: 55 Year

DRUGS (16)
  1. PANTOPRAZOLE [Concomitant]
     Active Substance: PANTOPRAZOLE SODIUM
  2. FAMOTIDINE. [Concomitant]
     Active Substance: FAMOTIDINE
  3. PROPANOLOL [Concomitant]
     Active Substance: PROPRANOLOL HYDROCHLORIDE
  4. DIGOXIN. [Concomitant]
     Active Substance: DIGOXIN
  5. FUROSEMIDE. [Concomitant]
     Active Substance: FUROSEMIDE
  6. RYTHMOL [Suspect]
     Active Substance: PROPAFENONE HYDROCHLORIDE
     Indication: PRODUCT USED FOR UNKNOWN INDICATION
     Dosage: 300 MG, UNK
  7. ISOSORBIDE DINITRATE. [Concomitant]
     Active Substance: ISOSORBIDE DINITRATE
  8. HYDROXYCHLOROQUINE [Concomitant]
     Active Substance: HYDROXYCHLOROQUINE
  9. ONDANSETRON [Concomitant]
     Active Substance: ONDANSETRON
  10. WARFARIN [Concomitant]
     Active Substance: WARFARIN
  11. FLUCONAZOLE. [Concomitant]
     Active Substance: FLUCONAZOLE
  12. DUSPATALIN [Concomitant]
     Active Substance: MEBEVERINE HYDROCHLORIDE
  13. IBUPROFEN. [Concomitant]
     Active Substance: IBUPROFEN
  14. AMIODARONE [Concomitant]
     Active Substance: AMIODARONE
  15. SPIRONOLACTONE. [Concomitant]
     Active Substance: SPIRONOLACTONE
  16. HEPARIN SODIUM. [Concomitant]
     Active Substance: HEPARIN SODIUM

REACTIONS (24)
  - Type 2 diabetes mellitus [Unknown]
  - Dyspepsia [Unknown]
  - Chronic obstructive pulmonary disease [Unknown]
  - Fatigue [Unknown]
  - Back pain [Unknown]
  - Respiratory disorder [Unknown]
  - Systemic lupus erythematosus [Unknown]
  - Myocardial ischaemia [Unknown]
  - Renal impairment [Unknown]
  - Musculoskeletal disorder [Unknown]
  - Labelled drug-drug interaction medication error [Unknown]
  - Toothache [Unknown]
  - Neuropathy peripheral [Unknown]
  - Cardiac failure [Unknown]
  - Mitral valve incompetence [Unknown]
  - Urinary tract infection [Unknown]
  - Myopathy [Unknown]
  - Skin disorder [Unknown]
  - Gastrointestinal disorder [Unknown]
  - Muscle spasms [Unknown]
  - Nervous system disorder [Unknown]
  - Syncope [Unknown]
  - Emphysema [Unknown]
  - Drug-disease interaction [Unknown]
